FAERS Safety Report 12159112 (Version 1)
Quarter: 2016Q1

REPORT INFORMATION
  Report Type: Spontaneous
  Country: US (occurrence: None)
  Receive Date: 20160307
  Receipt Date: 20160307
  Transmission Date: 20160526
  Serious: No
  Sender: FDA-Public Use
  Company Number: None

PATIENT
  Age: 80 Year
  Sex: Male
  Weight: 99.79 kg

DRUGS (1)
  1. GABAPENTIN. [Suspect]
     Active Substance: GABAPENTIN
     Dosage: GABAPENTIN 100 1-2CAP HS PO
     Route: 048

REACTIONS (4)
  - Nausea [None]
  - Malaise [None]
  - Insomnia [None]
  - Dizziness [None]

NARRATIVE: CASE EVENT DATE: 20160229
